FAERS Safety Report 21791042 (Version 1)
Quarter: 2022Q4

REPORT INFORMATION
  Report Type: Report from Study
  Country: US (occurrence: US)
  Receive Date: 20221228
  Receipt Date: 20221228
  Transmission Date: 20230113
  Serious: No
  Sender: FDA-Public Use
  Company Number: US-ABBVIE-22K-163-4465179-00

PATIENT
  Sex: Female

DRUGS (2)
  1. SKYRIZI [Suspect]
     Active Substance: RISANKIZUMAB-RZAA
     Indication: Psoriasis
     Dosage: TIME INTERVAL: 1 TOTAL: WEEK 0
     Route: 058
     Dates: start: 20220610, end: 20220610
  2. SKYRIZI [Suspect]
     Active Substance: RISANKIZUMAB-RZAA
     Dosage: WEEK 4/ALL EVENTS WERE STARTED ON AN UNKNOWN DATE IN 2022
     Route: 058
     Dates: start: 202207, end: 202207

REACTIONS (13)
  - Animal scratch [Recovered/Resolved]
  - Feeling hot [Unknown]
  - Pruritus [Unknown]
  - Overweight [Not Recovered/Not Resolved]
  - Arthropathy [Unknown]
  - Gait disturbance [Unknown]
  - Skin mass [Unknown]
  - Influenza [Recovered/Resolved]
  - Nodule [Unknown]
  - Cellulitis [Unknown]
  - Psoriasis [Recovering/Resolving]
  - Pain in extremity [Unknown]
  - Chest discomfort [Not Recovered/Not Resolved]
